FAERS Safety Report 4814993-1 (Version None)
Quarter: 2005Q4

REPORT INFORMATION
  Report Type: 
  Country: None (occurrence: None)
  Receive Date: 20051026
  Receipt Date: 20051006
  Transmission Date: 20060501
  Serious: Yes (Hospitalization)
  Sender: FDA-Public Use
  Company Number: JP_050907563

PATIENT
  Age: 72 Year
  Sex: Female
  Weight: 39 kg

DRUGS (11)
  1. EVISTA [Suspect]
     Indication: OSTEOPOROSIS
     Dosage: 60 MG/1 DAY
     Dates: start: 20050701, end: 20050908
  2. INSULIN [Concomitant]
  3. ALDACTONE [Concomitant]
  4. FERRUM (FERROUS FUMARATE) [Concomitant]
  5. GASTER D /JPN/ (FAMOTIDINE) [Concomitant]
  6. ATELEC (CILNIDIPINE) [Concomitant]
  7. DIOVAN [Concomitant]
  8. ASPIRIN [Concomitant]
  9. STOMILASE [Concomitant]
  10. DIASTASE [Concomitant]
  11. NITRODERM TTS-10 (NITRODERM TTS-10) [Concomitant]

REACTIONS (4)
  - BLOOD ALBUMIN DECREASED [None]
  - FACE OEDEMA [None]
  - HYPOGLYCAEMIA [None]
  - OEDEMA PERIPHERAL [None]
